FAERS Safety Report 10380185 (Version 1)
Quarter: 2014Q3

REPORT INFORMATION
  Report Type: Spontaneous
  Country: US (occurrence: US)
  Receive Date: 20140813
  Receipt Date: 20140813
  Transmission Date: 20150326
  Serious: No
  Sender: FDA-Public Use
  Company Number: US-009507513-1408USA004833

PATIENT
  Sex: Female

DRUGS (2)
  1. IMPLANON [Suspect]
     Active Substance: ETONOGESTREL
     Dosage: SECOND IMPLANON ROD, 68 UNITS UNKNOWN
     Route: 059
  2. IMPLANON [Suspect]
     Active Substance: ETONOGESTREL
     Indication: CONTRACEPTION
     Dosage: 68 UNITS UNKNOWN
     Route: 059
     Dates: start: 2011

REACTIONS (9)
  - Affect lability [Not Recovered/Not Resolved]
  - Menometrorrhagia [Not Recovered/Not Resolved]
  - Weight loss poor [Not Recovered/Not Resolved]
  - Implant site scar [Not Recovered/Not Resolved]
  - Unintended pregnancy [Unknown]
  - Implant site pain [Not Recovered/Not Resolved]
  - Weight increased [Not Recovered/Not Resolved]
  - Myalgia [Not Recovered/Not Resolved]
  - Medical device complication [Not Recovered/Not Resolved]
